FAERS Safety Report 4497405-X (Version None)
Quarter: 2004Q4

REPORT INFORMATION
  Report Type: 
  Country: None (occurrence: None)
  Receive Date: 20041104
  Receipt Date: 20041022
  Transmission Date: 20050328
  Serious: Yes (Other)
  Sender: FDA-Public Use
  Company Number: 2004082513

PATIENT
  Age: 88 Year
  Sex: Female
  Weight: 47.1741 kg

DRUGS (8)
  1. NORVASC [Suspect]
     Indication: HYPERTENSION
     Dosage: (5 MG)
  2. OTHER ANTIHYPERTENSIVES (OTHER ANTIHYPERTENSIVES) [Suspect]
     Indication: HYPERTENSION
     Dates: start: 20040101, end: 20040101
  3. CLONIDINE [Suspect]
     Indication: HYPERTENSION
     Dates: start: 20040101, end: 20040101
  4. LORAZEPAM [Suspect]
     Indication: ILL-DEFINED DISORDER
  5. LEVOTHYROXINE SODIUM [Concomitant]
  6. TOCOPHEROL CONCENTRATE CAP [Concomitant]
  7. ASCORBIC ACID [Concomitant]
  8. FOLIC ACID [Concomitant]

REACTIONS (12)
  - BLOOD PRESSURE DIASTOLIC INCREASED [None]
  - BLOOD PRESSURE SYSTOLIC INCREASED [None]
  - DISEASE RECURRENCE [None]
  - DRUG DEPENDENCE [None]
  - HEARING IMPAIRED [None]
  - HYPOTENSION [None]
  - MYCOTIC ALLERGY [None]
  - PRURITUS GENERALISED [None]
  - SENSORY DISTURBANCE [None]
  - THERAPEUTIC RESPONSE INCREASED [None]
  - TINNITUS [None]
  - VISION BLURRED [None]
